FAERS Safety Report 6978574-6 (Version None)
Quarter: 2010Q3

REPORT INFORMATION
  Report Type: 
  Country: None (occurrence: None)
  Receive Date: 20100913
  Receipt Date: 20100905
  Transmission Date: 20110219
  Serious: Yes (Congenital Anomaly)
  Sender: FDA-Public Use
  Company Number: BR-ROCHE-377779

PATIENT
  Sex: Male

DRUGS (2)
  1. ROACUTAN [Suspect]
     Indication: ACNE
     Dates: start: 20040315, end: 20040701
  2. NUVARING [Concomitant]
     Indication: CONTRACEPTION
     Dates: start: 20040101, end: 20040101

REACTIONS (2)
  - DEFORMITY [None]
  - NERVOUS SYSTEM DISORDER [None]
